FAERS Safety Report 17488030 (Version 4)
Quarter: 2020Q3

REPORT INFORMATION
  Report Type: Spontaneous
  Country: US (occurrence: US)
  Receive Date: 20200303
  Receipt Date: 20200810
  Transmission Date: 20201102
  Serious: Yes (Death)
  Sender: FDA-Public Use
  Company Number: US-PFIZER INC-2020093909

PATIENT
  Age: 83 Year
  Sex: Female
  Weight: 66.68 kg

DRUGS (1)
  1. IBRANCE [Suspect]
     Active Substance: PALBOCICLIB
     Indication: BREAST CANCER FEMALE
     Dosage: 75 MG, CYCLIC (75MG ONCE DAILY, 21 DAYS ON AND 7 OFF)
     Route: 048
     Dates: start: 201908

REACTIONS (9)
  - Diarrhoea [Unknown]
  - Drug hypersensitivity [Unknown]
  - Nasopharyngitis [Unknown]
  - Abdominal discomfort [Unknown]
  - Neoplasm progression [Fatal]
  - Head discomfort [Unknown]
  - Asthenia [Not Recovered/Not Resolved]
  - Headache [Unknown]
  - Nutritional condition abnormal [Unknown]
